FAERS Safety Report 10162637 (Version 2)
Quarter: 2014Q2

REPORT INFORMATION
  Report Type: Spontaneous
  Country: US (occurrence: US)
  Receive Date: 20140509
  Receipt Date: 20140613
  Transmission Date: 20141212
  Serious: Yes (Other)
  Sender: FDA-Public Use
  Company Number: US-PFIZER INC-2014127082

PATIENT
  Age: 69 Year
  Sex: Female

DRUGS (15)
  1. CELEBREX [Suspect]
     Dosage: 200 MG, DAILY
     Route: 048
     Dates: start: 20140506
  2. LASIX [Concomitant]
     Dosage: 40 MG, DAILY
     Route: 048
     Dates: start: 20140609
  3. NORCO [Concomitant]
     Indication: PAIN
     Dosage: 1 DF, 2X/DAY (10-325MG, 1 TAB)
     Route: 048
     Dates: start: 20140530
  4. XANAX [Concomitant]
     Indication: ANXIETY
     Dosage: 1 MG, 3X/DAY
     Route: 048
     Dates: start: 20140529
  5. AMBIEN [Concomitant]
     Indication: INSOMNIA
     Dosage: 10 MG, AS NEEDED
     Route: 048
     Dates: start: 20140522
  6. DELTASONE [Concomitant]
     Dosage: 5 MG, UNK (WITH BREAKFAST)
     Route: 048
     Dates: start: 20140506
  7. FLEXERIL [Concomitant]
     Indication: MUSCLE SPASMS
     Dosage: 5 MG, AS NEEDED
     Route: 048
     Dates: start: 20140428
  8. PROZAC [Concomitant]
     Dosage: 20 MG, DAILY
     Route: 048
     Dates: start: 20140429
  9. LIDODERM [Concomitant]
     Dosage: UNK, (APPLY 1 PATCH TO AFFECTED AREA EVERY 24 HOURS. ON FOR 12 HOURS AND OFF FOR 12 HOURS)
     Route: 061
     Dates: start: 20140331
  10. LOPRESSOR [Concomitant]
     Dosage: 50 MG, 2X/DAY
     Route: 048
     Dates: start: 20140327
  11. CLIMARA [Concomitant]
     Dosage: UNK, (APPLY 1 PATCH)
     Route: 062
     Dates: start: 20140121
  12. CYMBALTA [Concomitant]
     Dosage: 60 MG, DAILY
     Route: 048
     Dates: start: 20140108
  13. NEXIUM [Concomitant]
     Dosage: 40 MG, DAILY
     Route: 048
     Dates: start: 20131022
  14. VYTORIN [Concomitant]
     Dosage: UNK (10-20 MG)
     Route: 048
     Dates: start: 20130731
  15. ASPIRIN [Concomitant]
     Dosage: 81 MG, ALTERNATE DAY (EVERY OTHER DAY)
     Route: 048
     Dates: start: 20130116

REACTIONS (2)
  - Renal impairment [Unknown]
  - Renal disorder [Unknown]
